FAERS Safety Report 22625574 (Version 2)
Quarter: 2023Q4

REPORT INFORMATION
  Report Type: Spontaneous
  Country: US (occurrence: US)
  Receive Date: 20230621
  Receipt Date: 20231103
  Transmission Date: 20240110
  Serious: Yes (Hospitalization)
  Sender: FDA-Public Use
  Company Number: US-PFIZER INC-PV202300066150

PATIENT
  Age: 80 Year
  Sex: Female
  Weight: 75.75 kg

DRUGS (3)
  1. VYNDAMAX [Suspect]
     Active Substance: TAFAMIDIS
     Indication: Acquired ATTR amyloidosis
     Dosage: 61 MG, 1X/DAY
     Route: 048
     Dates: start: 202304
  2. VERAPAMIL [Concomitant]
     Active Substance: VERAPAMIL HYDROCHLORIDE
     Dosage: UNK
  3. METOPROLOL [Concomitant]
     Active Substance: METOPROLOL
     Dosage: SMALLER DOSES IN THE MORNING AND IN THE NIGHT

REACTIONS (10)
  - Atrioventricular block [Recovering/Resolving]
  - Heart rate decreased [Recovering/Resolving]
  - Speech rehabilitation [Unknown]
  - Aortic valve stenosis [Unknown]
  - Thyroid function test abnormal [Unknown]
  - Thyroid disorder [Unknown]
  - Peripheral swelling [Recovered/Resolved]
  - Hypersensitivity [Unknown]
  - Blood thyroid stimulating hormone increased [Unknown]
  - Therapeutic response unexpected [Unknown]

NARRATIVE: CASE EVENT DATE: 20230101
